FAERS Safety Report 13276056 (Version 3)
Quarter: 2017Q2

REPORT INFORMATION
  Report Type: Spontaneous
  Country: JP (occurrence: JP)
  Receive Date: 20170228
  Receipt Date: 20170421
  Transmission Date: 20170830
  Serious: Yes (Other)
  Sender: FDA-Public Use
  Company Number: JP-ROCHE-1899111

PATIENT
  Age: 60 Year
  Sex: Male

DRUGS (5)
  1. LUCENTIS [Suspect]
     Active Substance: RANIBIZUMAB
     Indication: AGE-RELATED MACULAR DEGENERATION
     Dosage: UNK
     Route: 031
     Dates: start: 20100517
  2. LUCENTIS [Suspect]
     Active Substance: RANIBIZUMAB
     Dosage: UNK
     Route: 031
     Dates: start: 20100726
  3. LUCENTIS [Suspect]
     Active Substance: RANIBIZUMAB
     Dosage: UNK
     Route: 031
     Dates: start: 20101108
  4. EYLEA [Suspect]
     Active Substance: AFLIBERCEPT
     Indication: AGE-RELATED MACULAR DEGENERATION
     Dosage: UNK
     Route: 031
     Dates: start: 20130218
  5. LUCENTIS [Suspect]
     Active Substance: RANIBIZUMAB
     Dosage: UNK
     Route: 031
     Dates: start: 20100621

REACTIONS (2)
  - Drug resistance [Unknown]
  - Age-related macular degeneration [Unknown]
